FAERS Safety Report 7655630-0 (Version None)
Quarter: 2011Q3

REPORT INFORMATION
  Report Type: 
  Country: None (occurrence: None)
  Receive Date: 20110804
  Receipt Date: 20110721
  Transmission Date: 20111222
  Serious: Yes (Hospitalization)
  Sender: FDA-Public Use
  Company Number: FR-SANOFI-AVENTIS-2011SA046528

PATIENT
  Age: 87 Year
  Sex: Female

DRUGS (8)
  1. ACETAMINOPHEN [Concomitant]
     Route: 048
  2. DESLORATADINE [Concomitant]
  3. ESCITALOPRAM OXALATE [Suspect]
     Indication: DEPRESSION
     Route: 048
     Dates: start: 20110101, end: 20110125
  4. OROCAL D(3) [Concomitant]
  5. REMINYL /UNK/ [Concomitant]
     Route: 048
  6. BISOPROLOL FUMARATE [Concomitant]
     Route: 048
  7. ZOLPIDEM [Suspect]
     Indication: DEPRESSION
     Route: 048
     Dates: start: 20110101, end: 20110125
  8. ASPIRIN [Concomitant]
     Route: 048

REACTIONS (3)
  - INAPPROPRIATE ANTIDIURETIC HORMONE SECRETION [None]
  - HYPOKALAEMIA [None]
  - HYPONATRAEMIA [None]
